FAERS Safety Report 7888669-0 (Version None)
Quarter: 2011Q4

REPORT INFORMATION
  Report Type: 
  Country: None (occurrence: None)
  Receive Date: 20111103
  Receipt Date: 20111024
  Transmission Date: 20120403
  Serious: Yes (Hospitalization, Other)
  Sender: FDA-Public Use
  Company Number: US-ACTELION-A-NJ2011-46228

PATIENT

DRUGS (3)
  1. REVATIO [Concomitant]
  2. TRACLEER [Suspect]
     Indication: PULMONARY ARTERIAL HYPERTENSION
     Dosage: UNK
     Route: 048
     Dates: start: 20060509
  3. OXYGEN [Concomitant]

REACTIONS (5)
  - PNEUMONIA [None]
  - DYSPNOEA [None]
  - ANGIOEDEMA [None]
  - PULMONARY OEDEMA [None]
  - LUNG DISORDER [None]
